FAERS Safety Report 20189078 (Version 2)
Quarter: 2022Q1

REPORT INFORMATION
  Report Type: Spontaneous
  Country: US (occurrence: None)
  Receive Date: 20211215
  Receipt Date: 20220113
  Transmission Date: 20220424
  Serious: No
  Sender: FDA-Public Use
  Company Number: 2021A850339

PATIENT
  Age: 56 Year
  Sex: Female
  Weight: 85.7 kg

DRUGS (2)
  1. FARXIGA [Suspect]
     Active Substance: DAPAGLIFLOZIN PROPANEDIOL
     Indication: Diabetes mellitus
     Dosage: 10.0MG UNKNOWN
     Route: 048
     Dates: end: 202110
  2. GLIMEPIRIDE [Concomitant]
     Active Substance: GLIMEPIRIDE

REACTIONS (2)
  - Weight increased [Recovering/Resolving]
  - Inability to afford medication [Recovering/Resolving]

NARRATIVE: CASE EVENT DATE: 20210101
